FAERS Safety Report 20662395 (Version 1)
Quarter: 2022Q2

REPORT INFORMATION
  Report Type: Spontaneous
  Country: IT (occurrence: IT)
  Receive Date: 20220401
  Receipt Date: 20220401
  Transmission Date: 20220720
  Serious: Yes (Hospitalization)
  Sender: FDA-Public Use
  Company Number: IT-MINISAL02-855619

PATIENT
  Age: 14 Year
  Sex: Female
  Weight: 49 kg

DRUGS (2)
  1. ACETAMINOPHEN [Suspect]
     Active Substance: ACETAMINOPHEN
     Indication: Drug abuse
     Dosage: 6 DOSAGE FORM, TOTAL
     Route: 048
     Dates: start: 20220227, end: 20220227
  2. DEXTROMETHORPHAN\GUAIFENESIN [Suspect]
     Active Substance: DEXTROMETHORPHAN\GUAIFENESIN
     Indication: Product used for unknown indication
     Dosage: 1 DOSAGE FORM, TOTAL
     Route: 048
     Dates: start: 20220227, end: 20220227

REACTIONS (4)
  - Confusional state [Recovered/Resolved]
  - Feeling jittery [Recovered/Resolved]
  - Mood altered [Recovered/Resolved]
  - Fear [Recovered/Resolved]

NARRATIVE: CASE EVENT DATE: 20220227
